FAERS Safety Report 13815961 (Version 1)
Quarter: 2017Q3

REPORT INFORMATION
  Report Type: Spontaneous
  Country: US (occurrence: US)
  Receive Date: 20170731
  Receipt Date: 20170731
  Transmission Date: 20171127
  Serious: Yes (Other)
  Sender: FDA-Public Use
  Company Number: US-SA-2016SA169061

PATIENT
  Sex: Female

DRUGS (1)
  1. AMBIEN [Suspect]
     Active Substance: ZOLPIDEM TARTRATE
     Route: 065

REACTIONS (11)
  - Feeling abnormal [Unknown]
  - Dizziness [Unknown]
  - Thinking abnormal [Unknown]
  - Overdose [Unknown]
  - Aggression [Unknown]
  - Disorientation [Unknown]
  - Hallucination [Unknown]
  - Gait disturbance [Unknown]
  - Agitation [Unknown]
  - Confusional state [Unknown]
  - Nausea [Unknown]
